FAERS Safety Report 8670310 (Version 2)
Quarter: 2012Q4

REPORT INFORMATION
  Report Type: 
  Country: US (occurrence: US)
  Receive Date: 20120718
  Receipt Date: 20120830
  Transmission Date: 20130627
  Serious: Yes (Other)
  Sender: FDA-Public Use
  Company Number: US-ARROW-2012-11672

PATIENT
  Age: 19 None
  Sex: Female
  Weight: 66 kg

DRUGS (3)
  1. AMETHIA [Suspect]
     Indication: MENSTRUAL DISORDER
     Dosage: 1 tablet daily
     Route: 048
     Dates: start: 201205
  2. AMETHIA [Suspect]
     Indication: MENSTRUAL CYCLE MANAGEMENT
  3. PREDNISONE [Suspect]
     Indication: GASTROINTESTINAL DISORDER
     Dosage: UNK
     Route: 048
     Dates: start: 201206, end: 201206

REACTIONS (2)
  - Drug ineffective [Not Recovered/Not Resolved]
  - Drug interaction [Unknown]
